FAERS Safety Report 6395365-8 (Version None)
Quarter: 2009Q4

REPORT INFORMATION
  Report Type: 
  Country: None (occurrence: None)
  Receive Date: 20091006
  Receipt Date: 20090921
  Transmission Date: 20100525
  Serious: Yes (Other)
  Sender: FDA-Public Use
  Company Number: ALL1-2009-02793

PATIENT
  Age: 6 Year
  Sex: Male
  Weight: 27.7 kg

DRUGS (3)
  1. VYVANSE [Suspect]
     Indication: ATTENTION DEFICIT/HYPERACTIVITY DISORDER
     Dosage: 30 MG, 1X1DAY:QD, ORAL
     Route: 048
     Dates: start: 20090921, end: 20090921
  2. RISPERDAL [Suspect]
     Indication: OPPOSITIONAL DEFIANT DISORDER
     Dosage: 0.5 MG, 2X/DAY:BID EVERY TWELVE HOURS, ORAL
     Route: 048
     Dates: start: 20090920, end: 20090921
  3. FLINTSTONES (VITAMINS NOS) [Concomitant]

REACTIONS (4)
  - CHEST PAIN [None]
  - PAIN [None]
  - PALPITATIONS [None]
  - TACHYCARDIA [None]
